FAERS Safety Report 8016585-2 (Version None)
Quarter: 2011Q4

REPORT INFORMATION
  Report Type: 
  Country: None (occurrence: None)
  Receive Date: 20111230
  Receipt Date: 20111221
  Transmission Date: 20120403
  Serious: Yes (Hospitalization, Other)
  Sender: FDA-Public Use
  Company Number: US-ASTRAZENECA-2010SE05175

PATIENT
  Age: 58 Year
  Sex: Female
  Weight: 51.3 kg

DRUGS (10)
  1. SEROQUEL [Suspect]
     Indication: SLEEP DISORDER
     Route: 048
     Dates: start: 20080101
  2. SEROQUEL [Suspect]
     Route: 048
     Dates: start: 20091101
  3. SEROQUEL [Suspect]
     Route: 048
     Dates: start: 20091101
  4. SEROQUEL [Suspect]
     Route: 048
     Dates: start: 20090101
  5. SEROQUEL [Suspect]
     Indication: CONVULSION
     Route: 048
     Dates: start: 20080101
  6. DEPAKOTE ER [Concomitant]
     Indication: CONVULSION
     Route: 048
  7. SEROQUEL [Suspect]
     Route: 048
     Dates: start: 20090101
  8. LAMICTAL [Concomitant]
     Indication: CONVULSION
  9. LAMICTAL [Concomitant]
     Indication: DEPRESSION
  10. LAMICTAL [Concomitant]
     Indication: ANXIETY

REACTIONS (16)
  - INCORRECT DOSE ADMINISTERED [None]
  - ROAD TRAFFIC ACCIDENT [None]
  - MEMORY IMPAIRMENT [None]
  - STRESS [None]
  - COMPLEX PARTIAL SEIZURES [None]
  - DISORIENTATION [None]
  - MIDDLE INSOMNIA [None]
  - TREMOR [None]
  - DRUG DOSE OMISSION [None]
  - SOMNOLENCE [None]
  - DRY MOUTH [None]
  - OFF LABEL USE [None]
  - CONVULSION [None]
  - PELVIC FRACTURE [None]
  - DEPRESSION [None]
  - AMNESIA [None]
